FAERS Safety Report 9329191 (Version 1)
Quarter: 2013Q2

REPORT INFORMATION
  Report Type: Spontaneous
  Country: US (occurrence: US)
  Receive Date: 20130604
  Receipt Date: 20130604
  Transmission Date: 20140414
  Serious: Yes (Other)
  Sender: FDA-Public Use
  Company Number: US-SANOFI-AVENTIS-2012SA074797

PATIENT
  Age: 71 Year
  Sex: Female

DRUGS (5)
  1. LANTUS SOLOSTAR [Suspect]
     Dosage: DOSE:40 UNIT(S)
     Route: 058
  2. LANTUS SOLOSTAR [Suspect]
     Dosage: DOSE:40 UNIT(S)
     Route: 058
  3. SOLOSTAR [Suspect]
  4. SOLOSTAR [Suspect]
  5. METFORMIN [Suspect]
     Route: 065

REACTIONS (3)
  - Cataract [Unknown]
  - Condition aggravated [Unknown]
  - Memory impairment [Unknown]
